FAERS Safety Report 6104224-7 (Version None)
Quarter: 2009Q1

REPORT INFORMATION
  Report Type: 
  Country: None (occurrence: None)
  Receive Date: 20090305
  Receipt Date: 20090226
  Transmission Date: 20090719
  Serious: Yes (Other)
  Sender: FDA-Public Use
  Company Number: GR-ROCHE-618116

PATIENT
  Age: 17 Year
  Sex: Male

DRUGS (1)
  1. ACCUTANE [Suspect]
     Indication: ACNE
     Route: 048

REACTIONS (3)
  - CHEILITIS [None]
  - LOW DENSITY LIPOPROTEIN INCREASED [None]
  - RETINAL VEIN OCCLUSION [None]
